FAERS Safety Report 17346098 (Version 1)
Quarter: 2020Q1

REPORT INFORMATION
  Report Type: Spontaneous
  Country: US (occurrence: US)
  Receive Date: 20200129
  Receipt Date: 20200129
  Transmission Date: 20200409
  Serious: Yes (Other)
  Sender: FDA-Public Use
  Company Number: US-ANIPHARMA-2020-US-001169

PATIENT
  Age: 24 Year
  Sex: Male

DRUGS (1)
  1. VALPROIC ACID (NON-SPECIFIC) [Suspect]
     Active Substance: VALPROIC ACID
     Indication: SEIZURE

REACTIONS (1)
  - Eosinophilic pleural effusion [Unknown]
